FAERS Safety Report 9176138 (Version 1)
Quarter: 2012Q4

REPORT INFORMATION
  Report Type: 
  Country: US (occurrence: US)
  Receive Date: 20120921
  Receipt Date: 20120921
  Transmission Date: 20130627
  Serious: Yes (Other)
  Sender: FDA-Public Use
  Company Number: US-RB-044697-12

PATIENT
  Age: 28 Year
  Sex: Female

DRUGS (1)
  1. SUBOXONE FILM [Suspect]
     Indication: PRODUCT USED FOR UNKNOWN INDICATION
     Dosage: Dosing details unknown
     Route: 065

REACTIONS (3)
  - Sjogren^s syndrome [Not Recovered/Not Resolved]
  - Pneumonia [Recovered/Resolved]
  - Underdose [Not Recovered/Not Resolved]
